FAERS Safety Report 25208172 (Version 1)
Quarter: 2025Q2

REPORT INFORMATION
  Report Type: Spontaneous
  Country: US (occurrence: US)
  Receive Date: 20250417
  Receipt Date: 20250417
  Transmission Date: 20250717
  Serious: Yes (Hospitalization, Other)
  Sender: BLUEPRINT MEDICINES
  Company Number: US-Blueprint Medicines Corporation-2025-AER-00711

PATIENT
  Age: 53 Year
  Sex: Female

DRUGS (1)
  1. AYVAKIT [Suspect]
     Active Substance: AVAPRITINIB
     Indication: Advanced systemic mastocytosis
     Route: 065

REACTIONS (10)
  - Breast cancer [Unknown]
  - Paraesthesia [Unknown]
  - Condition aggravated [Unknown]
  - Large intestine polyp [Unknown]
  - Throat lesion [Unknown]
  - Dysphagia [Unknown]
  - Pharyngeal swelling [Unknown]
  - Electrolyte depletion [Not Recovered/Not Resolved]
  - Product dose omission issue [Unknown]
  - Malaise [Unknown]
